FAERS Safety Report 23516919 (Version 2)
Quarter: 2024Q1

REPORT INFORMATION
  Report Type: Spontaneous
  Country: NL (occurrence: NL)
  Receive Date: 20240213
  Receipt Date: 20240307
  Transmission Date: 20240410
  Serious: Yes (Other)
  Sender: FDA-Public Use
  Company Number: NL-VELOXIS PHARMACEUTICALS, INC.-2024-VEL-00028

PATIENT
  Age: 31 Year
  Sex: Female

DRUGS (8)
  1. TRAMADOL [Suspect]
     Active Substance: TRAMADOL\TRAMADOL HYDROCHLORIDE
     Indication: Product used for unknown indication
     Dosage: UNK
     Route: 065
  2. ESOMEPRAZOLE [Suspect]
     Active Substance: ESOMEPRAZOLE
     Indication: Product used for unknown indication
     Dosage: UNK
     Route: 065
  3. MYCOPHENOLATE MOFETIL [Suspect]
     Active Substance: MYCOPHENOLATE MOFETIL
     Indication: Renal transplant
     Dosage: UNK
     Route: 065
  4. ENVARSUS XR [Suspect]
     Active Substance: TACROLIMUS
     Indication: Renal transplant
     Dosage: UNK
     Route: 065
  5. FLUTICASONE [Concomitant]
     Active Substance: FLUTICASONE
     Indication: Seasonal allergy
     Dosage: 50 MICROGRAM, QD, AEROSOL
     Route: 065
  6. PERTUSSIS VACCINE [Concomitant]
     Active Substance: PERTUSSIS VACCINE
     Indication: Product used for unknown indication
     Dosage: UNK
     Route: 065
  7. LORATADINE [Concomitant]
     Active Substance: LORATADINE
     Indication: Seasonal allergy
     Dosage: 10 MILLIGRAM, QD
     Route: 048
  8. COVID-19 vaccine [Concomitant]
     Indication: Product used for unknown indication
     Dosage: UNK
     Route: 065

REACTIONS (3)
  - Ovarian hyperstimulation syndrome [Unknown]
  - Premature delivery [Recovered/Resolved]
  - Maternal exposure during pregnancy [Unknown]

NARRATIVE: CASE EVENT DATE: 20211001
